FAERS Safety Report 24426767 (Version 2)
Quarter: 2025Q3

REPORT INFORMATION
  Report Type: Report from Study
  Country: US (occurrence: US)
  Receive Date: 20241011
  Receipt Date: 20250809
  Transmission Date: 20251021
  Serious: Yes (Other)
  Sender: ALEXION PHARMACEUTICALS
  Company Number: US-AstraZeneca-CH-00716398A

PATIENT
  Sex: Female
  Weight: 44.444 kg

DRUGS (1)
  1. SELUMETINIB [Suspect]
     Active Substance: SELUMETINIB
     Indication: Neurofibromatosis

REACTIONS (4)
  - Hallucinations, mixed [Unknown]
  - Mood altered [Unknown]
  - Hypotension [Unknown]
  - Heart rate increased [Unknown]
